FAERS Safety Report 8158781 (Version 3)
Quarter: 2012Q4

REPORT INFORMATION
  Report Type: Spontaneous
  Country: GB (occurrence: None)
  Receive Date: 20110915
  Receipt Date: 20120822
  Transmission Date: 20130627
  Serious: Yes (Life-Threatening)
  Sender: FDA-Public Use
  Company Number: 2011AP001956

PATIENT
  Age: 64 Year
  Sex: Male

DRUGS (9)
  1. LEFLUNOMIDE [Suspect]
     Indication: RHEUMATOID ARTHRITIS
     Dosage: 10 MG;PO
     Route: 048
     Dates: start: 20110707
  2. AMLODIPINE BESYLATE [Concomitant]
  3. BENDROFLUMETHIAZIDE (BENDROFLUMIETHIAZIDE) [Concomitant]
  4. NAPROXEN [Concomitant]
  5. OMEPRAZOLE [Concomitant]
  6. PERINDOPRIL ERBUMINE [Concomitant]
  7. PREDNISOLONE [Concomitant]
  8. SIMVASTATIN [Concomitant]
  9. TAMSULOSIN HYDROCHLORIDE [Concomitant]

REACTIONS (1)
  - ISCHAEMIC STROKE [None]
